FAERS Safety Report 7157135-2 (Version None)
Quarter: 2010Q4

REPORT INFORMATION
  Report Type: 
  Country: None (occurrence: None)
  Receive Date: 20101214
  Receipt Date: 20100129
  Transmission Date: 20110411
  Serious: No
  Sender: FDA-Public Use
  Company Number: US-ASTRAZENECA-2010SE00272

PATIENT
  Age: 66 Year
  Sex: Female

DRUGS (6)
  1. CRESTOR [Suspect]
     Route: 048
     Dates: start: 20090101
  2. HECTOROL [Concomitant]
     Indication: PARATHYROID DISORDER
  3. NORVASC [Concomitant]
     Indication: BLOOD PRESSURE
  4. TOPROL-XL [Concomitant]
     Indication: BLOOD PRESSURE
  5. CARDURA [Concomitant]
     Indication: BLOOD PRESSURE
  6. FE [Concomitant]

REACTIONS (6)
  - GLOSSODYNIA [None]
  - NIGHTMARE [None]
  - PETECHIAE [None]
  - SLEEP DISORDER [None]
  - SWOLLEN TONGUE [None]
  - TONGUE BLISTERING [None]
